FAERS Safety Report 6039351-6 (Version None)
Quarter: 2009Q1

REPORT INFORMATION
  Report Type: 
  Country: None (occurrence: None)
  Receive Date: 20090114
  Receipt Date: 20090107
  Transmission Date: 20090719
  Serious: Yes (Other)
  Sender: FDA-Public Use
  Company Number: 2008SP026029

PATIENT
  Age: 8 Year
  Sex: Male
  Weight: 33 kg

DRUGS (2)
  1. CLARITIN [Suspect]
     Indication: RHINITIS ALLERGIC
     Dosage: 10 MG; ; PO
     Route: 048
     Dates: start: 20081216, end: 20081216
  2. HUSTAZOL [Concomitant]

REACTIONS (3)
  - HALLUCINATION [None]
  - MIDDLE INSOMNIA [None]
  - TINNITUS [None]
